FAERS Safety Report 6394976-3 (Version None)
Quarter: 2009Q4

REPORT INFORMATION
  Report Type: 
  Country: None (occurrence: None)
  Receive Date: 20091009
  Receipt Date: 20090930
  Transmission Date: 20100525
  Serious: Yes (Death)
  Sender: FDA-Public Use
  Company Number: JP-PFIZER INC-2009245237

PATIENT
  Age: 61 Year

DRUGS (1)
  1. REVATIO [Suspect]
     Indication: PULMONARY HYPERTENSION
     Dosage: 40 MG, 1X/DAY
     Route: 048
     Dates: start: 20090604, end: 20090611

REACTIONS (2)
  - CARDIAC FAILURE CONGESTIVE [None]
  - HEADACHE [None]
